FAERS Safety Report 4477788-7 (Version None)
Quarter: 2004Q4

REPORT INFORMATION
  Report Type: 
  Country: None (occurrence: None)
  Receive Date: 20041014
  Receipt Date: 20040930
  Transmission Date: 20050328
  Serious: Yes (Life-Threatening, Hospitalization)
  Sender: FDA-Public Use
  Company Number: 2004-DE-04988DE

PATIENT
  Age: 82 Year
  Sex: Female

DRUGS (5)
  1. AGGRENOX [Suspect]
     Indication: PROPHYLAXIS
     Dosage: STRENGTH: DIPYRIDAMOLE 200 MG, PO
     Route: 048
     Dates: start: 20040915, end: 20040915
  2. AGGRENOX [Suspect]
     Indication: TRANSIENT ISCHAEMIC ATTACK
     Dosage: STRENGTH: DIPYRIDAMOLE 200 MG, PO
     Route: 048
     Dates: start: 20040915, end: 20040915
  3. METOPROLOL SUCCINATE [Concomitant]
  4. BLOPRESS (CANDESARTAN CILEXETIL) [Concomitant]
  5. DECORTIN H (NR) [Concomitant]

REACTIONS (5)
  - CEREBROVASCULAR ACCIDENT [None]
  - GASTROINTESTINAL DISORDER [None]
  - HEADACHE [None]
  - LOSS OF CONSCIOUSNESS [None]
  - VOMITING [None]
